FAERS Safety Report 5105972-8 (Version None)
Quarter: 2006Q3

REPORT INFORMATION
  Report Type: 
  Country: None (occurrence: None)
  Receive Date: 20060915
  Receipt Date: 20060503
  Transmission Date: 20061208
  Serious: Yes (Death, Hospitalization)
  Sender: FDA-Public Use
  Company Number: FR-MERCK-0605FRA00009

PATIENT
  Age: 71 Year
  Sex: Female

DRUGS (16)
  1. NOROXIN [Suspect]
     Route: 048
     Dates: start: 20060314, end: 20060321
  2. METFORMIN HYDROCHLORIDE [Concomitant]
     Indication: DIABETES MELLITUS NON-INSULIN-DEPENDENT
     Route: 048
     Dates: start: 20060220
  3. PENICILLIN V [Suspect]
     Route: 048
     Dates: start: 20060221, end: 20060310
  4. ACETAMINOPHEN [Concomitant]
     Route: 048
     Dates: start: 20060221
  5. ENOXAPARIN SODIUM [Concomitant]
     Route: 058
     Dates: start: 20060220
  6. FLUINDIONE [Suspect]
     Indication: THROMBOSIS PROPHYLAXIS
     Route: 048
     Dates: start: 20060301, end: 20060321
  7. NICORANDIL [Concomitant]
     Route: 048
  8. ESOMEPRAZOLE MAGNESIUM [Concomitant]
     Route: 048
     Dates: end: 20060321
  9. AMLODIPINE BESYLATE [Concomitant]
     Route: 048
  10. ATENOLOL [Concomitant]
     Route: 048
  11. ATORVASTATIN CALCIUM [Concomitant]
     Indication: HYPERCHOLESTEROLAEMIA
     Route: 048
  12. AMIODARONE HYDROCHLORIDE [Concomitant]
     Route: 048
  13. ALENDRONATE SODIUM [Concomitant]
     Indication: OSTEOPOROSIS
     Route: 048
  14. CLOPIDOGREL BISULFATE [Concomitant]
     Indication: THROMBOSIS PROPHYLAXIS
     Route: 048
     Dates: start: 20060220, end: 20060308
  15. DOMPERIDONE [Concomitant]
     Route: 048
     Dates: start: 20060222
  16. ZOPICLONE [Concomitant]
     Indication: INSOMNIA
     Route: 048

REACTIONS (2)
  - DEATH [None]
  - HAEMOLYTIC ANAEMIA [None]
